FAERS Safety Report 8820427 (Version 1)
Quarter: 2012Q4

REPORT INFORMATION
  Report Type: 
  Country: US (occurrence: US)
  Receive Date: 20121002
  Receipt Date: 20121002
  Transmission Date: 20130627
  Serious: Yes (Other)
  Sender: FDA-Public Use
  Company Number: US-ABBOTT-12P-163-0989150-00

PATIENT
  Sex: Male
  Weight: 83.99 kg

DRUGS (8)
  1. SYNTHROID [Suspect]
     Indication: HYPOTHYROIDISM
     Dates: start: 20120829
  2. SYNTHROID [Suspect]
     Dates: start: 20120625, end: 20120828
  3. SYNTHROID [Suspect]
     Dates: end: 201201
  4. METFORMIN [Concomitant]
     Indication: DIABETES MELLITUS
  5. LOSARTAN [Concomitant]
     Indication: HYPERTENSION
  6. GLIPIZIDE [Concomitant]
     Indication: DIABETES MELLITUS
  7. ASA [Concomitant]
     Indication: PRODUCT USED FOR UNKNOWN INDICATION
  8. ROSOUVASTATIN [Concomitant]
     Indication: BLOOD CHOLESTEROL INCREASED

REACTIONS (3)
  - Atrial fibrillation [Recovered/Resolved]
  - Blood thyroid stimulating hormone increased [Recovered/Resolved]
  - Heart rate increased [Recovered/Resolved]
